FAERS Safety Report 11592478 (Version 1)
Quarter: 2015Q4

REPORT INFORMATION
  Report Type: Spontaneous
  Country: FR (occurrence: FR)
  Receive Date: 20151005
  Receipt Date: 20151005
  Transmission Date: 20160304
  Serious: Yes (Disabling)
  Sender: FDA-Public Use
  Company Number: FR-ROCHE-1641643

PATIENT
  Age: 71 Year
  Sex: Male

DRUGS (3)
  1. LERCAN [Concomitant]
     Active Substance: LERCANIDIPINE
  2. ZELBORAF [Suspect]
     Active Substance: VEMURAFENIB
     Indication: MALIGNANT MELANOMA
     Route: 048
     Dates: start: 20150115, end: 201508
  3. IMOVANE [Concomitant]
     Active Substance: ZOPICLONE

REACTIONS (2)
  - Dysgeusia [Not Recovered/Not Resolved]
  - Hypoacusis [Not Recovered/Not Resolved]

NARRATIVE: CASE EVENT DATE: 201502
